FAERS Safety Report 5968279-2 (Version None)
Quarter: 2008Q4

REPORT INFORMATION
  Report Type: 
  Country: None (occurrence: None)
  Receive Date: 20081126
  Receipt Date: 20081120
  Transmission Date: 20090506
  Serious: Yes (Other)
  Sender: FDA-Public Use
  Company Number: US-JNJFOC-20081105385

PATIENT
  Age: 51 Year
  Sex: Female
  Weight: 131.54 kg

DRUGS (4)
  1. TYLENOL (CAPLET) [Suspect]
     Route: 048
  2. TYLENOL (CAPLET) [Suspect]
     Indication: ARTHRALGIA
     Route: 048
  3. CALCIUM [Concomitant]
     Indication: MEDICAL DIET
  4. MULTI-VITAMIN [Concomitant]
     Indication: MEDICAL DIET

REACTIONS (4)
  - DEPENDENCE [None]
  - DRY MOUTH [None]
  - INSOMNIA [None]
  - NERVOUSNESS [None]
